FAERS Safety Report 5946028-1 (Version None)
Quarter: 2008Q4

REPORT INFORMATION
  Report Type: 
  Country: None (occurrence: None)
  Receive Date: 20081106
  Receipt Date: 20081106
  Transmission Date: 20090506
  Serious: Yes (Hospitalization, Other)
  Sender: FDA-Public Use
  Company Number: None

PATIENT
  Sex: Female
  Weight: 43.5 kg

DRUGS (1)
  1. DEPAKOTE ER [Suspect]
     Indication: PETIT MAL EPILEPSY
     Dosage: 1250 MG Q HS PO
     Route: 048
     Dates: start: 20080611, end: 20080916

REACTIONS (2)
  - HEPATITIS [None]
  - PANCREATITIS [None]
